FAERS Safety Report 6593339-5 (Version None)
Quarter: 2010Q1

REPORT INFORMATION
  Report Type: 
  Country: None (occurrence: None)
  Receive Date: 20100222
  Receipt Date: 20090206
  Transmission Date: 20100710
  Serious: No
  Sender: FDA-Public Use
  Company Number: US-BRISTOL-MYERS SQUIBB COMPANY-14497846

PATIENT
  Age: 72 Year
  Sex: Female
  Weight: 61 kg

DRUGS (3)
  1. ORENCIA [Suspect]
     Indication: RHEUMATOID ARTHRITIS
     Dosage: RECEIVED A TOTAL OF 3 INFUSIONS
     Dates: start: 20090101
  2. EVOXAC [Concomitant]
  3. ESTRACE [Concomitant]

REACTIONS (3)
  - ARTHRALGIA [None]
  - BREAST PAIN [None]
  - BREAST SWELLING [None]
